FAERS Safety Report 4731898-5 (Version None)
Quarter: 2005Q3

REPORT INFORMATION
  Report Type: 
  Country: None (occurrence: None)
  Receive Date: 20050802
  Receipt Date: 20050726
  Transmission Date: 20060218
  Serious: Yes (Life-Threatening, Hospitalization)
  Sender: FDA-Public Use
  Company Number: 2005AP04087

PATIENT
  Age: 39 Year
  Sex: Male

DRUGS (6)
  1. DIPRIVAN [Suspect]
     Indication: SEDATION
     Route: 042
     Dates: start: 20050719, end: 20050720
  2. DIPRIVAN [Suspect]
     Route: 042
     Dates: start: 20050722
  3. SUCCINYLCHOLINE CHLORIDE INJ [Suspect]
     Dates: start: 20050719, end: 20050719
  4. CEFMETAZON [Concomitant]
     Dates: start: 20050717, end: 20050721
  5. MIDAZOLAM HCL [Concomitant]
     Dates: start: 20050719, end: 20050720
  6. PANCURONIUM BROMIDE [Concomitant]
     Dates: start: 20050719

REACTIONS (3)
  - BLOOD CREATINE PHOSPHOKINASE INCREASED [None]
  - HYPERTHERMIA MALIGNANT [None]
  - RHABDOMYOLYSIS [None]
